FAERS Safety Report 19284455 (Version 1)
Quarter: 2021Q2

REPORT INFORMATION
  Report Type: Spontaneous
  Country: US (occurrence: US)
  Receive Date: 20210521
  Receipt Date: 20210521
  Transmission Date: 20210717
  Serious: No
  Sender: FDA-Public Use
  Company Number: None

PATIENT
  Age: 53 Year
  Sex: Female
  Weight: 106.1 kg

DRUGS (12)
  1. VITAMIN D (CHOLECALCIFEROL) [Concomitant]
     Active Substance: CHOLECALCIFEROL
  2. VERZENIO [Concomitant]
     Active Substance: ABEMACICLIB
  3. VERZENIO [Suspect]
     Active Substance: ABEMACICLIB
     Indication: NEOPLASM MALIGNANT
     Route: 048
     Dates: start: 20210430
  4. LOVASTATIN. [Concomitant]
     Active Substance: LOVASTATIN
  5. PROCHLORPERAZINE MALEATE. [Concomitant]
     Active Substance: PROCHLORPERAZINE MALEATE
  6. VITAMIN B12 [Concomitant]
     Active Substance: CYANOCOBALAMIN
  7. FOLIC ACID. [Concomitant]
     Active Substance: FOLIC ACID
  8. LETROZOLE. [Concomitant]
     Active Substance: LETROZOLE
  9. MULTI VITAMIN [Concomitant]
     Active Substance: VITAMINS
  10. CA CARBONATE?MAG OXIDE?VIT C [Concomitant]
  11. LOMOTIL [Concomitant]
     Active Substance: ATROPINE SULFATE\DIPHENOXYLATE HYDROCHLORIDE
  12. ONDANSETRON [Concomitant]
     Active Substance: ONDANSETRON

REACTIONS (4)
  - Nausea [None]
  - Decreased appetite [None]
  - Diarrhoea [None]
  - Fatigue [None]

NARRATIVE: CASE EVENT DATE: 20210521
